FAERS Safety Report 9901187 (Version 1)
Quarter: 2014Q1

REPORT INFORMATION
  Report Type: Report from Study
  Country: US (occurrence: US)
  Receive Date: 20140217
  Receipt Date: 20140217
  Transmission Date: 20141002
  Serious: Yes (Hospitalization, Other)
  Sender: FDA-Public Use
  Company Number: US-ASTELLAS-2014US001571

PATIENT
  Sex: Male

DRUGS (1)
  1. ERLOTINIB TABLET [Suspect]
     Indication: SQUAMOUS CELL CARCINOMA OF THE TONGUE
     Dosage: 150 MG, UID/QD
     Route: 048
     Dates: start: 20131107, end: 20140110

REACTIONS (20)
  - Off label use [Unknown]
  - Pain [Unknown]
  - Blindness unilateral [Unknown]
  - Neoplasm [Unknown]
  - Sepsis [Unknown]
  - Infection [Unknown]
  - Feeling cold [Not Recovered/Not Resolved]
  - Chills [Not Recovered/Not Resolved]
  - Pain [Not Recovered/Not Resolved]
  - Retching [Not Recovered/Not Resolved]
  - Hypophagia [Unknown]
  - Oncologic complication [Not Recovered/Not Resolved]
  - Hyperaesthesia [Unknown]
  - Infected neoplasm [Unknown]
  - Pyrexia [Not Recovered/Not Resolved]
  - Fatigue [Unknown]
  - Exfoliative rash [Unknown]
  - Fatigue [Unknown]
  - Asthenia [Unknown]
  - Rash [Unknown]
